FAERS Safety Report 5597981-X (Version None)
Quarter: 2008Q1

REPORT INFORMATION
  Report Type: 
  Country: None (occurrence: None)
  Receive Date: 20080116
  Receipt Date: 20071231
  Transmission Date: 20080703
  Serious: Yes (Hospitalization)
  Sender: FDA-Public Use
  Company Number: 2008US000153

PATIENT
  Age: 74 Year
  Sex: Female

DRUGS (11)
  1. AMBISOME [Suspect]
     Indication: BRONCHOPULMONARY ASPERGILLOSIS
     Dosage: 100 MG, UID/QVD, IV NOS
     Route: 042
     Dates: start: 20070719, end: 20070803
  2. OZEX(TOSUFLOXACIN TOSILATE) [Suspect]
     Indication: PNEUMONIA ASPIRATION
     Dosage: 450 MG, UID/QD, ORAL
     Route: 048
     Dates: start: 20070729, end: 20070802
  3. RISPERDAL [Concomitant]
  4. AKINETON [Concomitant]
  5. DEPAS (ETIZOLAM) [Concomitant]
  6. NITRAZEPAM [Concomitant]
  7. PURSENNID (SENNOSIDE A+B) [Concomitant]
  8. SEROQUEL [Concomitant]
  9. UNIPHYL [Concomitant]
  10. SINGULAIR (MONTELUKAST SODIM) [Concomitant]
  11. HOKUNALIN (TULOBUTEROL HYDROCHLORIDE) [Concomitant]

REACTIONS (4)
  - HYPOKALAEMIA [None]
  - OLIGURIA [None]
  - PNEUMONIA ASPIRATION [None]
  - RENAL FAILURE ACUTE [None]
